FAERS Safety Report 8663485 (Version 2)
Quarter: 2012Q4

REPORT INFORMATION
  Report Type: 
  Country: FR (occurrence: FR)
  Receive Date: 20120713
  Receipt Date: 20120918
  Transmission Date: 20130627
  Serious: Yes (Other)
  Sender: FDA-Public Use
  Company Number: FR-CELGENEUS-056-21880-12030670

PATIENT
  Age: 90 Year
  Sex: Female

DRUGS (4)
  1. REVLIMID [Suspect]
     Indication: MULTIPLE MYELOMA
     Dosage: 10 Milligram
     Route: 048
     Dates: start: 20120226, end: 20120226
  2. REVLIMID [Suspect]
     Route: 048
  3. ANTI-VITAMIN K [Concomitant]
     Indication: CENTRAL RETINAL VEIN OCCLUSION
     Route: 065
  4. KARDEGIC [Concomitant]
     Indication: THROMBOSIS PROPHYLAXIS
     Dosage: 1 Dosage forms
     Route: 065
     Dates: start: 20120220

REACTIONS (1)
  - Retinal vein occlusion [Not Recovered/Not Resolved]
